FAERS Safety Report 14202371 (Version 1)
Quarter: 2017Q4

REPORT INFORMATION
  Report Type: Spontaneous
  Country: US (occurrence: US)
  Receive Date: 20171117
  Receipt Date: 20171117
  Transmission Date: 20180321
  Serious: No
  Sender: FDA-Public Use
  Company Number: US-ELI_LILLY_AND_COMPANY-US201711006372

PATIENT
  Age: 67 Year
  Sex: Female

DRUGS (8)
  1. HUMALOG [Suspect]
     Active Substance: INSULIN LISPRO
     Dosage: 3 U, DAILY(BREAKFAST)
     Dates: start: 20171111
  2. HUMALOG [Suspect]
     Active Substance: INSULIN LISPRO
     Dosage: 4 U, TID
  3. LANTUS [Suspect]
     Active Substance: INSULIN GLARGINE
     Indication: PRODUCT USED FOR UNKNOWN INDICATION
     Dosage: 6 U, DAILY(AT NIGHT)
  4. LANTUS [Suspect]
     Active Substance: INSULIN GLARGINE
     Dosage: 6 U, DAILY(AT BEDTIME)
  5. HUMALOG [Suspect]
     Active Substance: INSULIN LISPRO
     Dosage: 4 U, DAILY(LUNCH)
     Dates: start: 20171111
  6. HUMALOG [Suspect]
     Active Substance: INSULIN LISPRO
     Indication: TYPE 1 DIABETES MELLITUS
     Dosage: 3 U, DAILY(BREAKFAST)
  7. HUMALOG [Suspect]
     Active Substance: INSULIN LISPRO
     Dosage: 4 U, TID
  8. HUMALOG [Suspect]
     Active Substance: INSULIN LISPRO
     Dosage: 5 U, DAILY(DINNER)
     Route: 065
     Dates: start: 20171111

REACTIONS (4)
  - Blood glucose decreased [Recovered/Resolved]
  - Incorrect dose administered [Unknown]
  - Hypoglycaemia [Recovered/Resolved]
  - Wrong technique in product usage process [Unknown]

NARRATIVE: CASE EVENT DATE: 201709
